FAERS Safety Report 4582634-7 (Version None)
Quarter: 2005Q1

REPORT INFORMATION
  Report Type: 
  Country: None (occurrence: None)
  Receive Date: 20050125
  Receipt Date: 20041116
  Transmission Date: 20050727
  Serious: No
  Sender: FDA-Public Use
  Company Number: US_0411108392

PATIENT
  Age: 69 Year
  Sex: Female
  Weight: 59 kg

DRUGS (13)
  1. FORTEO [Suspect]
     Indication: OSTEOPOROSIS
     Dosage: 20 UG DAY
     Dates: start: 20040817
  2. SYNTHROID [Concomitant]
  3. METHADONE [Concomitant]
  4. ZETIA [Concomitant]
  5. NEURONTIN (GABAPENTIN PFIZER) [Concomitant]
  6. AMBIEN [Concomitant]
  7. XANAX (ALPRAZOLAM DUM) [Concomitant]
  8. VITAMINS NOS [Concomitant]
  9. CALCIUM GLUCONATE [Concomitant]
  10. BETAGAN (LEVOBUNOLOL HYDROCHLORIDE) [Concomitant]
  11. AZOPT [Concomitant]
  12. VITAMIN E [Concomitant]
  13. ASPIRIN [Concomitant]

REACTIONS (3)
  - DIZZINESS [None]
  - INJECTION SITE ERYTHEMA [None]
  - INJECTION SITE HAEMORRHAGE [None]
